FAERS Safety Report 5154957-4 (Version None)
Quarter: 2006Q4

REPORT INFORMATION
  Report Type: 
  Country: None (occurrence: None)
  Receive Date: 20061121
  Receipt Date: 20061110
  Transmission Date: 20070319
  Serious: Yes (Hospitalization)
  Sender: FDA-Public Use
  Company Number: PHBS2006JP17707

PATIENT
  Age: 70 Year
  Sex: Female

DRUGS (2)
  1. LIORESAL [Suspect]
     Indication: CONVULSION
     Dosage: 5 MG/DAY
     Route: 048
     Dates: start: 20061027, end: 20061029
  2. DIALYSIS [Concomitant]

REACTIONS (1)
  - MUSCULAR WEAKNESS [None]
